FAERS Safety Report 6714252-6 (Version None)
Quarter: 2010Q2

REPORT INFORMATION
  Report Type: 
  Country: None (occurrence: None)
  Receive Date: 20100506
  Receipt Date: 20090526
  Transmission Date: 20101027
  Serious: No
  Sender: FDA-Public Use
  Company Number: US-BAUSCH-2009BL002543

PATIENT
  Age: 48 Year
  Sex: Female

DRUGS (6)
  1. LOTEMAX [Suspect]
     Indication: POSTOPERATIVE CARE
     Route: 047
     Dates: start: 20060101, end: 20090101
  2. LOTEMAX [Suspect]
     Route: 047
     Dates: start: 20090501, end: 20090501
  3. LOTEMAX [Suspect]
     Route: 047
     Dates: start: 20090101, end: 20090701
  4. TRAVATAN [Concomitant]
     Indication: INTRAOCULAR PRESSURE TEST ABNORMAL
     Route: 047
     Dates: start: 20060101
  5. COMBIGAN [Concomitant]
     Indication: INTRAOCULAR PRESSURE TEST ABNORMAL
     Route: 047
     Dates: start: 20060101
  6. TEARS FREE [Concomitant]
     Indication: DRY EYE
     Route: 047
     Dates: start: 20060101

REACTIONS (1)
  - FOREIGN BODY SENSATION IN EYES [None]
